FAERS Safety Report 16283030 (Version 3)
Quarter: 2020Q4

REPORT INFORMATION
  Report Type: Spontaneous
  Country: US (occurrence: US)
  Receive Date: 20190507
  Receipt Date: 20201229
  Transmission Date: 20210113
  Serious: Yes (Death, Hospitalization, Other)
  Sender: FDA-Public Use
  Company Number: US-ASTRAZENECA-2019SE65734

PATIENT
  Age: 25100 Day
  Sex: Male
  Weight: 81.1 kg

DRUGS (39)
  1. PREVACID [Suspect]
     Active Substance: LANSOPRAZOLE
     Indication: GASTROOESOPHAGEAL REFLUX DISEASE
     Route: 065
     Dates: start: 198901, end: 199912
  2. LIDOCAINE. [Concomitant]
     Active Substance: LIDOCAINE
  3. PEPCID [Concomitant]
     Active Substance: FAMOTIDINE
  4. ATENOLOL. [Concomitant]
     Active Substance: ATENOLOL
  5. PSYLLIUM [Concomitant]
     Active Substance: PLANTAGO SEED
  6. MEGESTROL [Concomitant]
     Active Substance: MEGESTROL
  7. GENERLAC [Concomitant]
     Active Substance: LACTULOSE
  8. CLONIDINE. [Concomitant]
     Active Substance: CLONIDINE
  9. FLUCONAZOLE. [Concomitant]
     Active Substance: FLUCONAZOLE
  10. ACETAMINOPHEN. [Concomitant]
     Active Substance: ACETAMINOPHEN
  11. COLESTIPOL [Concomitant]
     Active Substance: COLESTIPOL
  12. MULTIVITAMIN [Concomitant]
     Active Substance: VITAMINS
  13. PRILOSEC [Suspect]
     Active Substance: OMEPRAZOLE MAGNESIUM
     Indication: GASTROOESOPHAGEAL REFLUX DISEASE
     Route: 048
     Dates: start: 198901, end: 199912
  14. PRILOSEC [Suspect]
     Active Substance: OMEPRAZOLE MAGNESIUM
     Indication: GASTROOESOPHAGEAL REFLUX DISEASE
     Dosage: GENERIC
     Route: 065
     Dates: start: 200307
  15. PREVACID [Suspect]
     Active Substance: LANSOPRAZOLE
     Indication: GASTROOESOPHAGEAL REFLUX DISEASE
     Route: 065
     Dates: start: 19890101, end: 19991231
  16. METOPROLOL. [Concomitant]
     Active Substance: METOPROLOL
  17. ASPIRIN. [Concomitant]
     Active Substance: ASPIRIN
  18. ZANTAC [Concomitant]
     Active Substance: RANITIDINE HYDROCHLORIDE
  19. TROSPIUM [Concomitant]
     Active Substance: TROSPIUM
  20. BUDESONIDE. [Concomitant]
     Active Substance: BUDESONIDE
  21. NEXIUM [Suspect]
     Active Substance: ESOMEPRAZOLE MAGNESIUM
     Indication: GASTROOESOPHAGEAL REFLUX DISEASE
     Route: 048
     Dates: start: 198901, end: 199912
  22. LISINOPRIL. [Concomitant]
     Active Substance: LISINOPRIL
  23. TROSPIUM [Concomitant]
     Active Substance: TROSPIUM
  24. CALCIUM ACETATE. [Concomitant]
     Active Substance: CALCIUM ACETATE
  25. PREDNISONE. [Concomitant]
     Active Substance: PREDNISONE
  26. TEMAZEPAM. [Concomitant]
     Active Substance: TEMAZEPAM
  27. NEXIUM [Suspect]
     Active Substance: ESOMEPRAZOLE MAGNESIUM
     Indication: GASTROOESOPHAGEAL REFLUX DISEASE
     Route: 048
     Dates: start: 200102, end: 20091231
  28. HYDROCODONE [Concomitant]
     Active Substance: HYDROCODONE
  29. TERAZOSIN [Concomitant]
     Active Substance: TERAZOSIN HYDROCHLORIDE
  30. AMLODIPINE BESYLATE. [Concomitant]
     Active Substance: AMLODIPINE BESYLATE
  31. ASPIRIN. [Concomitant]
     Active Substance: ASPIRIN
  32. TAMSULOSIN [Concomitant]
     Active Substance: TAMSULOSIN
  33. OXYCODONE [Concomitant]
     Active Substance: OXYCODONE
  34. SODIUM BICARBONATE. [Concomitant]
     Active Substance: SODIUM BICARBONATE
  35. BISACODYL. [Concomitant]
     Active Substance: BISACODYL
  36. TAGAMET [Concomitant]
     Active Substance: CIMETIDINE
  37. CETRIZINE [Concomitant]
     Active Substance: CETIRIZINE HYDROCHLORIDE
  38. TADALAFIL. [Concomitant]
     Active Substance: TADALAFIL
  39. FERROUS FUMARATE [Concomitant]
     Active Substance: FERROUS FUMARATE

REACTIONS (8)
  - Chronic kidney disease [Unknown]
  - End stage renal disease [Unknown]
  - Chronic kidney disease-mineral and bone disorder [Unknown]
  - Renal failure [Unknown]
  - Acute kidney injury [Unknown]
  - Nephrogenic anaemia [Unknown]
  - Gastrooesophageal reflux disease [Unknown]
  - Hyperparathyroidism secondary [Unknown]

NARRATIVE: CASE EVENT DATE: 20150128
